FAERS Safety Report 8207290-8 (Version None)
Quarter: 2012Q1

REPORT INFORMATION
  Report Type: 
  Country: None (occurrence: None)
  Receive Date: 20120314
  Receipt Date: 20120305
  Transmission Date: 20120608
  Serious: Yes (Other)
  Sender: FDA-Public Use
  Company Number: FR-JNJFOC-20120303664

PATIENT
  Sex: Female

DRUGS (5)
  1. XARELTO [Suspect]
     Indication: KNEE ARTHROPLASTY
     Route: 048
     Dates: start: 20120120, end: 20120122
  2. CEFAZOLIN [Concomitant]
     Route: 042
     Dates: start: 20120120, end: 20120121
  3. TRAMADOL HCL [Concomitant]
     Route: 048
     Dates: start: 20120121
  4. KETOPROFEN [Concomitant]
     Route: 048
     Dates: start: 20120120, end: 20120120
  5. XARELTO [Suspect]
     Indication: THROMBOSIS PROPHYLAXIS
     Route: 048
     Dates: start: 20120120, end: 20120122

REACTIONS (1)
  - DEEP VEIN THROMBOSIS [None]
